FAERS Safety Report 10050750 (Version 1)
Quarter: 2014Q2

REPORT INFORMATION
  Report Type: Spontaneous
  Country: US (occurrence: US)
  Receive Date: 20140401
  Receipt Date: 20140401
  Transmission Date: 20141212
  Serious: No
  Sender: FDA-Public Use
  Company Number: US-ASTRAZENECA-2013SE75993

PATIENT
  Age: 6 Year
  Sex: Female
  Weight: 30.6 kg

DRUGS (4)
  1. NEXIUM [Suspect]
     Indication: GASTROOESOPHAGEAL REFLUX DISEASE
     Route: 048
     Dates: start: 20131007
  2. ZANTAC SUSPENSION [Concomitant]
     Indication: GASTROOESOPHAGEAL REFLUX DISEASE
     Route: 048
     Dates: start: 20131007
  3. MIRALAX [Concomitant]
     Indication: CONSTIPATION
     Dosage: BID
     Route: 048
     Dates: start: 201301
  4. CITRAZINE [Concomitant]
     Indication: MULTIPLE ALLERGIES
     Route: 048
     Dates: start: 201308

REACTIONS (4)
  - Generalised oedema [Unknown]
  - Face oedema [Unknown]
  - Circumstance or information capable of leading to medication error [Unknown]
  - Off label use [Unknown]
